FAERS Safety Report 13725783 (Version 1)
Quarter: 2017Q3

REPORT INFORMATION
  Report Type: Report from Study
  Country: US (occurrence: US)
  Receive Date: 20170707
  Receipt Date: 20170707
  Transmission Date: 20171127
  Serious: Yes (Hospitalization, Other)
  Sender: FDA-Public Use
  Company Number: US-GILEAD-2017-0281753

PATIENT
  Age: 26 Year
  Sex: Female
  Weight: 160 kg

DRUGS (3)
  1. ADCIRCA [Concomitant]
     Active Substance: TADALAFIL
  2. AMBRISENTAN [Suspect]
     Active Substance: AMBRISENTAN
     Indication: PRODUCT USED FOR UNKNOWN INDICATION
     Dosage: 5 MG, QD
     Route: 065
  3. LASIX [Concomitant]
     Active Substance: FUROSEMIDE

REACTIONS (6)
  - Dizziness [Unknown]
  - Syncope [Unknown]
  - Asthenia [Unknown]
  - Paraesthesia [Unknown]
  - Dyspnoea exertional [Unknown]
  - Hypoaesthesia [Unknown]

NARRATIVE: CASE EVENT DATE: 201706
